FAERS Safety Report 19539940 (Version 1)
Quarter: 2021Q3

REPORT INFORMATION
  Report Type: Spontaneous
  Country: US (occurrence: US)
  Receive Date: 20210713
  Receipt Date: 20210713
  Transmission Date: 20211014
  Serious: No
  Sender: FDA-Public Use
  Company Number: US-PFIZER INC-2018215091

PATIENT
  Age: 10 Year
  Sex: Male
  Weight: 104.33 kg

DRUGS (3)
  1. GENOTROPIN [Suspect]
     Active Substance: SOMATROPIN
     Dosage: 0.6 MG, DAILY
     Dates: start: 20160312
  2. GENOTROPIN [Suspect]
     Active Substance: SOMATROPIN
     Indication: GROWTH DISORDER
     Dosage: 1.8 MG, 1X/DAY (1.8MG BY INJECTION ONCE A NIGHT)
     Dates: start: 2016
  3. GENOTROPIN [Suspect]
     Active Substance: SOMATROPIN
     Dosage: 2 MG, 1X/DAY

REACTIONS (5)
  - Expired device used [Unknown]
  - Device power source issue [Unknown]
  - Drug dose omission by device [Unknown]
  - Wrong technique in device usage process [Unknown]
  - Device information output issue [Unknown]
